FAERS Safety Report 5177504-X (Version None)
Quarter: 2006Q4

REPORT INFORMATION
  Report Type: 
  Country: None (occurrence: None)
  Receive Date: 20061218
  Receipt Date: 20061204
  Transmission Date: 20070319
  Serious: Yes (Other)
  Sender: FDA-Public Use
  Company Number: CH-ELI_LILLY_AND_COMPANY-CH200612000520

PATIENT
  Age: 65 Year
  Sex: Female

DRUGS (9)
  1. FORTEO [Suspect]
     Indication: OSTEOPOROSIS
     Dosage: 20 UG, OTHER
     Route: 058
     Dates: start: 20061127
  2. FORTEO [Suspect]
     Dosage: 20 UG, OTHER
     Route: 058
     Dates: start: 20061130
  3. CALCORT                                 /USA/ [Concomitant]
     Indication: PAIN
     Dosage: 12 MG, DAILY (1/D)
     Route: 048
  4. TIATRAL                            /00002701/ [Concomitant]
     Indication: PAIN
     Dosage: 100 MG, DAILY (1/D)
     Route: 048
  5. ATARAX [Concomitant]
     Dosage: UNK UNK, DAILY (1/D)
     Route: 048
  6. LITALIR                                 /GFR/ [Concomitant]
  7. MARCOUMAR /NET/ [Concomitant]
  8. CALCIMAGON-D3 /SCH/ [Concomitant]
     Indication: OSTEOPOROSIS
     Dosage: UNK UNK, 2/D
     Route: 048
  9. AREDIA                                  /SWE/ [Concomitant]
     Indication: OSTEOPOROSIS
     Dosage: 30 MG, OTHER
     Route: 042

REACTIONS (2)
  - HYPERHIDROSIS [None]
  - MUSCLE SPASMS [None]
